FAERS Safety Report 6864738-9 (Version None)
Quarter: 2010Q3

REPORT INFORMATION
  Report Type: 
  Country: None (occurrence: None)
  Receive Date: 20100721
  Receipt Date: 20080405
  Transmission Date: 20110219
  Serious: No
  Sender: FDA-Public Use
  Company Number: US-PFIZER INC-2008031607

PATIENT
  Sex: Female
  Weight: 44.545 kg

DRUGS (7)
  1. CHANTIX [Suspect]
     Indication: SMOKING CESSATION THERAPY
     Route: 048
     Dates: start: 20080329
  2. NEXIUM [Concomitant]
  3. ESGIC [Concomitant]
  4. PARA-SELTZER [Concomitant]
  5. ACETYLSALICYLIC ACID [Concomitant]
  6. OMEPRAZOLE [Concomitant]
  7. ESTROGENS [Concomitant]

REACTIONS (2)
  - DYSPEPSIA [None]
  - NAUSEA [None]
